FAERS Safety Report 23031163 (Version 1)
Quarter: 2023Q4

REPORT INFORMATION
  Report Type: Spontaneous
  Country: US (occurrence: US)
  Receive Date: 20231005
  Receipt Date: 20231005
  Transmission Date: 20240109
  Serious: No
  Sender: FDA-Public Use
  Company Number: US-Merck Healthcare KGaA-2023478962

PATIENT
  Age: 43 Year
  Sex: Female

DRUGS (1)
  1. MAVENCLAD [Suspect]
     Active Substance: CLADRIBINE
     Indication: Multiple sclerosis
     Dosage: FIRST CYCLE THERAPY
     Dates: start: 20231002

REACTIONS (2)
  - Respiratory tract congestion [Unknown]
  - Nasal congestion [Unknown]

NARRATIVE: CASE EVENT DATE: 20231003
